FAERS Safety Report 8439690 (Version 3)
Quarter: 2013Q3

REPORT INFORMATION
  Report Type: Spontaneous
  Country: FI (occurrence: FI)
  Receive Date: 20120305
  Receipt Date: 20130911
  Transmission Date: 20140515
  Serious: Yes (Other)
  Sender: FDA-Public Use
  Company Number: FI-BAYER-2012-018075

PATIENT
  Age: 18 Year
  Sex: Female

DRUGS (3)
  1. YAZ [Suspect]
     Indication: CONTRACEPTION
     Dosage: UNK
     Route: 048
     Dates: start: 200903, end: 201112
  2. MENINGOCOCCAL VACCINE [Concomitant]
     Indication: ANTIBIOTIC PROPHYLAXIS
     Dosage: 0.5 ML, ONCE
     Route: 030
     Dates: start: 20111020, end: 20111020
  3. MENINGOCOCCAL VACCINE [Concomitant]
     Indication: IMMUNISATION
     Dosage: UNK
     Route: 030
     Dates: start: 20110516, end: 20110516

REACTIONS (5)
  - Pregnancy on oral contraceptive [None]
  - Abortion spontaneous incomplete [None]
  - Vaginal haemorrhage [None]
  - Exposure during pregnancy [None]
  - Drug dose omission [None]
